FAERS Safety Report 12631648 (Version 2)
Quarter: 2016Q3

REPORT INFORMATION
  Report Type: Spontaneous
  Country: US (occurrence: US)
  Receive Date: 20160808
  Receipt Date: 20160808
  Transmission Date: 20161109
  Serious: No
  Sender: FDA-Public Use
  Company Number: US-BEH-2015055171

PATIENT
  Age: 53 Year
  Sex: Female
  Weight: 45 kg

DRUGS (18)
  1. MULTIVITAMINS [Concomitant]
     Active Substance: VITAMINS
  2. VITAMIN B6 [Concomitant]
     Active Substance: PYRIDOXINE HYDROCHLORIDE
  3. CALTRATE -600 WITH VIT D [Concomitant]
  4. EVISTA [Concomitant]
     Active Substance: RALOXIFENE HYDROCHLORIDE
  5. PREMARIN VAGINAL [Concomitant]
     Active Substance: ESTROGENS, CONJUGATED
  6. CEPHALEXIN. [Concomitant]
     Active Substance: CEPHALEXIN
  7. TEGRETOL [Concomitant]
     Active Substance: CARBAMAZEPINE
  8. TEMAZEPAM. [Concomitant]
     Active Substance: TEMAZEPAM
  9. VESICARE [Concomitant]
     Active Substance: SOLIFENACIN SUCCINATE
  10. CENTRUM COMPLETE MULTIVITAMIN [Concomitant]
  11. MIRALAX [Concomitant]
     Active Substance: POLYETHYLENE GLYCOL 3350
  12. VITAMIN B12 [Concomitant]
     Active Substance: CYANOCOBALAMIN
  13. HIZENTRA [Suspect]
     Active Substance: HUMAN IMMUNOGLOBULIN G
     Indication: IMMUNODEFICIENCY COMMON VARIABLE
     Dosage: ??-MAY-2013 TO ??-OCT-2015
     Route: 058
  14. LIDOCAINE/PRILOCAINE [Concomitant]
     Active Substance: LIDOCAINE\PRILOCAINE
  15. EPIPEN [Concomitant]
     Active Substance: EPINEPHRINE
  16. VITAMIN D3 [Concomitant]
     Active Substance: CHOLECALCIFEROL
  17. HIZENTRA [Suspect]
     Active Substance: HUMAN IMMUNOGLOBULIN G
     Indication: COMBINED IMMUNODEFICIENCY
     Route: 058
  18. FLAGYL [Concomitant]
     Active Substance: METRONIDAZOLE\METRONIDAZOLE HYDROCHLORIDE

REACTIONS (5)
  - Palpitations [Recovering/Resolving]
  - Chest pain [Recovered/Resolved]
  - Chest discomfort [Recovered/Resolved]
  - Heart rate increased [Recovering/Resolving]
  - Dizziness [Recovering/Resolving]

NARRATIVE: CASE EVENT DATE: 20151023
